FAERS Safety Report 5408970-X (Version None)
Quarter: 2007Q3

REPORT INFORMATION
  Report Type: 
  Country: None (occurrence: None)
  Receive Date: 20070713
  Receipt Date: 20070328
  Transmission Date: 20080115
  Serious: Yes (Other)
  Sender: FDA-Public Use
  Company Number: US-JNJFOC-20060801157

PATIENT
  Age: 46 Year
  Sex: Female

DRUGS (2)
  1. ORTHO EVRA [Suspect]
     Indication: CONTRACEPTION
     Dosage: TRANSDERMAL
     Route: 062
     Dates: start: 20040601, end: 20041020
  2. TOPAMAX [Concomitant]

REACTIONS (1)
  - LACUNAR INFARCTION [None]
